FAERS Safety Report 4265680-2 (Version None)
Quarter: 2004Q1

REPORT INFORMATION
  Report Type: 
  Country: None (occurrence: None)
  Receive Date: 20040107
  Receipt Date: 20040102
  Transmission Date: 20041129
  Serious: Yes (Hospitalization)
  Sender: FDA-Public Use
  Company Number: FR-GLAXOSMITHKLINE-B0318851A

PATIENT
  Age: 88 Year
  Sex: Male

DRUGS (7)
  1. CLAMOXYL [Suspect]
     Indication: PROSTATITIS
     Dosage: 2G PER DAY
     Route: 048
     Dates: start: 20030829, end: 20030908
  2. CORDARONE [Suspect]
     Indication: CARDIOMYOPATHY
     Route: 048
     Dates: end: 20030922
  3. COVERSYL [Suspect]
     Indication: CARDIOMYOPATHY
     Route: 048
     Dates: end: 20030922
  4. NOROXIN [Suspect]
     Indication: PROSTATITIS
     Route: 048
     Dates: start: 20030909, end: 20030915
  5. MINI-SINTROM [Suspect]
     Indication: CARDIOMYOPATHY
     Route: 048
     Dates: end: 20030915
  6. BURINEX [Concomitant]
     Indication: CARDIOMYOPATHY
     Route: 048
     Dates: end: 20030919
  7. ELISOR [Concomitant]
     Indication: CARDIOMYOPATHY
     Dosage: 20MG UNKNOWN
     Route: 048
     Dates: end: 20030902

REACTIONS (7)
  - ANOREXIA [None]
  - ASTHENIA [None]
  - BLOOD CREATININE INCREASED [None]
  - HEPATITIS [None]
  - OCULAR ICTERUS [None]
  - PHLEBITIS [None]
  - RENAL FAILURE [None]
